FAERS Safety Report 5677634-X (Version None)
Quarter: 2008Q1

REPORT INFORMATION
  Report Type: 
  Country: None (occurrence: None)
  Receive Date: 20080324
  Receipt Date: 20080312
  Transmission Date: 20080703
  Serious: Yes (Hospitalization, Other)
  Sender: FDA-Public Use
  Company Number: US-ELI_LILLY_AND_COMPANY-US200802006605

PATIENT
  Sex: Female

DRUGS (7)
  1. CYMBALTA [Suspect]
     Indication: DEPRESSION
     Dosage: 60 MG, UNK
     Dates: start: 20071101, end: 20080103
  2. VALIUM [Concomitant]
  3. ALCOHOL [Concomitant]
     Dosage: 1 D/F, UNK
  4. XANAX [Concomitant]
     Dosage: 1 D/F, UNK
  5. TOPAMAX [Concomitant]
     Dosage: 1 D/F, UNK
  6. BUSPAR [Concomitant]
     Indication: MUSCLE SPASMS
     Dosage: 1 D/F, UNK
  7. CAMPRAL [Concomitant]
     Dosage: 1 D/F, UNK

REACTIONS (7)
  - ALANINE AMINOTRANSFERASE INCREASED [None]
  - ASPARTATE AMINOTRANSFERASE [None]
  - BLOOD ALKALINE PHOSPHATASE INCREASED [None]
  - BLOOD GLUCOSE DECREASED [None]
  - CARBON DIOXIDE DECREASED [None]
  - FATIGUE [None]
  - GAMMA-GLUTAMYLTRANSFERASE INCREASED [None]
